FAERS Safety Report 25418763 (Version 1)
Quarter: 2025Q2

REPORT INFORMATION
  Report Type: Spontaneous
  Country: US (occurrence: None)
  Receive Date: 20250610
  Receipt Date: 20250610
  Transmission Date: 20250716
  Serious: Yes (Other)
  Sender: FDA-CTU
  Company Number: None

PATIENT
  Age: 55 Year
  Sex: Female

DRUGS (8)
  1. NUCALA [Suspect]
     Active Substance: MEPOLIZUMAB
     Indication: Asthma
     Dosage: FREQUENCY : MONTHLY;?
     Route: 058
     Dates: start: 20250421
  2. NATEGLINIDE [Concomitant]
     Active Substance: NATEGLINIDE
  3. OMEPRAZOLE [Concomitant]
     Active Substance: OMEPRAZOLE
  4. DIOVAN [Concomitant]
     Active Substance: VALSARTAN
  5. SINGULAIR [Concomitant]
     Active Substance: MONTELUKAST SODIUM
  6. HUMALOG [Concomitant]
     Active Substance: INSULIN LISPRO
  7. LEVEMIR [Concomitant]
     Active Substance: INSULIN DETEMIR
  8. GLIPIZIDE [Concomitant]
     Active Substance: GLIPIZIDE

REACTIONS (3)
  - Hypoaesthesia [None]
  - Dyspnoea [None]
  - Pulmonary pain [None]

NARRATIVE: CASE EVENT DATE: 20250607
